FAERS Safety Report 6313301-7 (Version None)
Quarter: 2009Q3

REPORT INFORMATION
  Report Type: 
  Country: None (occurrence: None)
  Receive Date: 20090818
  Receipt Date: 20090811
  Transmission Date: 20100115
  Serious: Yes (Death, Hospitalization)
  Sender: FDA-Public Use
  Company Number: A0801485A

PATIENT
  Age: 62 Year
  Sex: Male

DRUGS (1)
  1. ROSIGLITAZONE MALEATE [Suspect]
     Indication: DIABETES MELLITUS
     Route: 048
     Dates: end: 20051115

REACTIONS (12)
  - ACUTE MYOCARDIAL INFARCTION [None]
  - ANOXIC ENCEPHALOPATHY [None]
  - CARDIAC FAILURE CONGESTIVE [None]
  - CARDIO-RESPIRATORY ARREST [None]
  - COMA [None]
  - CORONARY ARTERY DISEASE [None]
  - DEATH [None]
  - DISEASE PROGRESSION [None]
  - FLUID OVERLOAD [None]
  - HEPATIC FAILURE [None]
  - ISCHAEMIC CARDIOMYOPATHY [None]
  - RESPIRATORY FAILURE [None]
